FAERS Safety Report 17535723 (Version 3)
Quarter: 2020Q1

REPORT INFORMATION
  Report Type: Report from Study
  Country: None (occurrence: US)
  Receive Date: 20200312
  Receipt Date: 20200327
  Transmission Date: 20200409
  Serious: Yes (Death, Hospitalization, Other)
  Sender: FDA-Public Use
  Company Number: US-ABBVIE-20K-163-3228867-00

PATIENT
  Age: 74 Year
  Sex: Female
  Weight: 90.8 kg

DRUGS (3)
  1. VENCLEXTA [Suspect]
     Active Substance: VENETOCLAX
     Indication: MYELODYSPLASTIC SYNDROME
     Dosage: DAY 1
     Route: 048
  2. VENCLEXTA [Suspect]
     Active Substance: VENETOCLAX
     Route: 048
     Dates: start: 201912
  3. VENCLEXTA [Suspect]
     Active Substance: VENETOCLAX
     Dosage: DAY 4, STARTING DAY 4 TAKE 1 TABLET BY MOUTH EVERY DAY
     Route: 048

REACTIONS (6)
  - Nausea [Not Recovered/Not Resolved]
  - Diarrhoea [Fatal]
  - White blood cell count decreased [Fatal]
  - Off label use [Unknown]
  - Platelet count decreased [Fatal]
  - Pneumonia [Fatal]

NARRATIVE: CASE EVENT DATE: 201912
